FAERS Safety Report 9237012 (Version 2)
Quarter: 2013Q2

REPORT INFORMATION
  Report Type: Other
  Country: BR (occurrence: BR)
  Receive Date: 20130417
  Receipt Date: 20130520
  Transmission Date: 20140414
  Serious: No
  Sender: FDA-Public Use
  Company Number: PHHY2013BR037401

PATIENT
  Sex: Female

DRUGS (2)
  1. RITALINA [Suspect]
     Indication: MEMORY IMPAIRMENT
     Dosage: UNK UKN, (2 TO 3 TABLETS PER DAY)
     Route: 048
     Dates: start: 2007
  2. TRILEPTAL [Concomitant]
     Indication: MEMORY IMPAIRMENT
     Dosage: 2 DF, QD
     Route: 048
     Dates: start: 2007

REACTIONS (1)
  - No adverse event [Unknown]
